FAERS Safety Report 22041721 (Version 1)
Quarter: 2023Q1

REPORT INFORMATION
  Report Type: Spontaneous
  Country: US (occurrence: None)
  Receive Date: 20230223
  Receipt Date: 20230223
  Transmission Date: 20230417
  Serious: No
  Sender: FDA-Public Use
  Company Number: None

PATIENT
  Sex: Male

DRUGS (2)
  1. LOSARTAN [Suspect]
     Active Substance: LOSARTAN
  2. LOSARTAN [Suspect]
     Active Substance: LOSARTAN

REACTIONS (5)
  - Product dispensing error [None]
  - Product dispensing error [None]
  - Incorrect dose administered [None]
  - Product storage error [None]
  - Product distribution issue [None]
